FAERS Safety Report 18448489 (Version 2)
Quarter: 2020Q4

REPORT INFORMATION
  Report Type: Spontaneous
  Country: IE (occurrence: IE)
  Receive Date: 20201031
  Receipt Date: 20201109
  Transmission Date: 20210114
  Serious: Yes (Other)
  Sender: FDA-Public Use
  Company Number: IE-TEVA-2020-IE-1842428

PATIENT
  Age: 81 Year
  Sex: Female

DRUGS (10)
  1. FLUCLOXACILLIN (GENERIC) [Suspect]
     Active Substance: FLUCLOXACILLIN
     Indication: SPINAL OPERATION
     Dosage: 2 GRAM
     Route: 042
     Dates: start: 20200924, end: 20201001
  2. EZETIMIBE (G) [Concomitant]
     Active Substance: EZETIMIBE
     Indication: BLOOD CHOLESTEROL
     Dosage: 10 MG
     Route: 048
     Dates: start: 20200920
  3. PARACETAMOL [Concomitant]
     Active Substance: ACETAMINOPHEN
     Indication: PAIN
     Route: 048
     Dates: start: 20200920
  4. TRELEGY ELLIPTA [Concomitant]
     Active Substance: FLUTICASONE FUROATE\UMECLIDINIUM BROMIDE\VILANTEROL TRIFENATATE
     Indication: ASTHMA
     Route: 055
     Dates: start: 20200920
  5. MELFEN [IBUPROFEN] [Suspect]
     Active Substance: IBUPROFEN
     Indication: SPINAL OPERATION
     Dosage: 400 MG
     Route: 048
     Dates: start: 20200925, end: 20200927
  6. OXYNORM [Concomitant]
     Active Substance: OXYCODONE HYDROCHLORIDE
     Indication: PAIN
     Dosage: 5 MG - 7.5 MG SC / PO
     Route: 048
     Dates: start: 20200921
  7. OXYNORM [Concomitant]
     Active Substance: OXYCODONE HYDROCHLORIDE
     Dosage: 5 MG - 7.5 MG SC / PO
     Route: 058
  8. LANSOPRAZOLE TEVA PHARMA [Suspect]
     Active Substance: LANSOPRAZOLE
     Indication: SPINAL OPERATION
     Dosage: 30 MG
     Route: 048
     Dates: start: 20200920, end: 20200928
  9. MONOPOST UNIDOSE 50 MICROGRAMS/ML EYE DROPS [Concomitant]
     Active Substance: LATANOPROST
     Indication: GLAUCOMA
     Dosage: 1 DROP(1GTT)
     Route: 047
     Dates: start: 20200920
  10. ZINACEF [Concomitant]
     Active Substance: CEFUROXIME SODIUM
     Indication: INFECTION
     Dosage: 1.5 GRAM, POWDER FOR SOLUTION FOR INJECTION/INFUSION
     Route: 042
     Dates: start: 20200921, end: 20200924

REACTIONS (2)
  - Acute kidney injury [Not Recovered/Not Resolved]
  - Tubulointerstitial nephritis [Not Recovered/Not Resolved]

NARRATIVE: CASE EVENT DATE: 20200927
